FAERS Safety Report 9116128 (Version 1)
Quarter: 2013Q1

REPORT INFORMATION
  Report Type: Spontaneous
  Country: US (occurrence: US)
  Receive Date: 20130225
  Receipt Date: 20130225
  Transmission Date: 20140127
  Serious: No
  Sender: FDA-Public Use
  Company Number: US-PFIZER INC-2013067118

PATIENT
  Sex: Female

DRUGS (3)
  1. CHANTIX [Suspect]
     Dosage: UNK
     Dates: start: 201302
  2. XANAX [Concomitant]
     Dosage: UNK
  3. LEXAPRO [Concomitant]
     Dosage: UNK

REACTIONS (1)
  - Somnolence [Unknown]
